FAERS Safety Report 10618539 (Version 1)
Quarter: 2014Q4

REPORT INFORMATION
  Report Type: Spontaneous
  Country: US (occurrence: None)
  Receive Date: 20141125
  Receipt Date: 20141125
  Transmission Date: 20150529
  Serious: Yes (Death)
  Sender: FDA-Public Use
  Company Number: 2014JUB00186

PATIENT
  Sex: Male

DRUGS (2)
  1. PREDNISONE (PREDNISONE) UNKNOWN [Suspect]
     Active Substance: PREDNISONE
  2. IMURAN [Suspect]
     Active Substance: AZATHIOPRINE

REACTIONS (1)
  - Death [None]
